FAERS Safety Report 18911012 (Version 1)
Quarter: 2021Q1

REPORT INFORMATION
  Report Type: Spontaneous
  Country: CA (occurrence: CA)
  Receive Date: 20210218
  Receipt Date: 20210218
  Transmission Date: 20210420
  Serious: Yes (Other)
  Sender: FDA-Public Use
  Company Number: CA-TEVA-2021-CA-1881025

PATIENT
  Age: 16 Year
  Sex: Female

DRUGS (6)
  1. HYDROCORTISONE. [Concomitant]
     Active Substance: HYDROCORTISONE
  2. ALOXI [Concomitant]
     Active Substance: PALONOSETRON HYDROCHLORIDE
  3. ETOPOSIDE INJECTION [Suspect]
     Active Substance: ETOPOSIDE
     Dosage: LIQUID INTRAVENOUS
     Route: 065
  4. BENADRYL INJ. 50MG/ML [Concomitant]
  5. DEXAMETHASONE SODIUM PHOSPHATE INJ USP 4MG/ML [Suspect]
     Active Substance: DEXAMETHASONE SODIUM PHOSPHATE
  6. ETOPOSIDE INJECTION USP [Concomitant]
     Active Substance: ETOPOSIDE

REACTIONS (1)
  - Infusion related reaction [Recovered/Resolved]
